FAERS Safety Report 9295158 (Version 1)
Quarter: 2013Q2

REPORT INFORMATION
  Report Type: Spontaneous
  Country: AR (occurrence: AR)
  Receive Date: 20130517
  Receipt Date: 20130517
  Transmission Date: 20140414
  Serious: Yes (Other)
  Sender: FDA-Public Use
  Company Number: AR-PFIZER INC-2013147986

PATIENT
  Age: 67 Year
  Sex: Female

DRUGS (1)
  1. AROMASIN [Suspect]
     Indication: BREAST CANCER
     Dosage: UNK
     Dates: start: 20120701, end: 201303

REACTIONS (4)
  - Thrombosis [Unknown]
  - Blood disorder [Not Recovered/Not Resolved]
  - Disease progression [Unknown]
  - Breast cancer [Unknown]
